FAERS Safety Report 4877651-3 (Version None)
Quarter: 2006Q1

REPORT INFORMATION
  Report Type: 
  Country: None (occurrence: None)
  Receive Date: 20060109
  Receipt Date: 20051226
  Transmission Date: 20060701
  Serious: Yes (Hospitalization)
  Sender: FDA-Public Use
  Company Number: 2005153311

PATIENT
  Age: 72 Year
  Sex: Female

DRUGS (12)
  1. LIPITOR [Suspect]
     Indication: ILL-DEFINED DISORDER
     Dosage: 10 MG (1 IN 1 D), ORAL
     Route: 048
     Dates: start: 20040302, end: 20041228
  2. WARFARIN SODIUM [Concomitant]
  3. AMARYL [Concomitant]
  4. LENDORM [Concomitant]
  5. LASIX [Concomitant]
  6. ALDACTONE [Concomitant]
  7. ALLOPURINOL [Concomitant]
  8. DIGOXIN [Concomitant]
  9. MAGNESIUM OXIDE (MAGNESIUM OXIDE) [Concomitant]
  10. MEXITIL [Concomitant]
  11. TIZANIDINE HCL [Concomitant]
  12. ISOSORBIDE DINITRATE [Concomitant]

REACTIONS (4)
  - CONDITION AGGRAVATED [None]
  - DIABETES MELLITUS [None]
  - GAMMA-GLUTAMYLTRANSFERASE INCREASED [None]
  - LIVER DISORDER [None]
